FAERS Safety Report 8206270-6 (Version None)
Quarter: 2012Q1

REPORT INFORMATION
  Report Type: 
  Country: None (occurrence: None)
  Receive Date: 20120313
  Receipt Date: 20120302
  Transmission Date: 20120608
  Serious: Yes (Hospitalization, Disabling)
  Sender: FDA-Public Use
  Company Number: PHHY2011FR29355

PATIENT
  Sex: Female

DRUGS (3)
  1. TASIGNA [Suspect]
     Dosage: 600 MG,
  2. ORAL CONTRACEPTIVE NOS [Concomitant]
  3. TASIGNA [Suspect]
     Indication: CHRONIC MYELOID LEUKAEMIA
     Dosage: 400 MG, BID
     Route: 048
     Dates: start: 20070111

REACTIONS (8)
  - PERIPHERAL ARTERIAL OCCLUSIVE DISEASE [None]
  - FEMORAL ARTERY OCCLUSION [None]
  - DYSLIPIDAEMIA [None]
  - ARTERIAL OCCLUSIVE DISEASE [None]
  - LOW DENSITY LIPOPROTEIN INCREASED [None]
  - INTERMITTENT CLAUDICATION [None]
  - PAIN IN EXTREMITY [None]
  - ARTERIAL STENOSIS [None]
